FAERS Safety Report 4803097-X (Version None)
Quarter: 2005Q4

REPORT INFORMATION
  Report Type: 
  Country: None (occurrence: None)
  Receive Date: 20051017
  Receipt Date: 20051017
  Transmission Date: 20060501
  Serious: Yes (Hospitalization)
  Sender: FDA-Public Use
  Company Number: None

PATIENT
  Age: 86 Year
  Sex: Male

DRUGS (10)
  1. DEXAMETHASONE [Suspect]
     Indication: APPETITE DISORDER
     Dosage: 4MG PO BID
     Route: 048
     Dates: start: 20050603, end: 20050711
  2. MIRTAZAPINE [Concomitant]
  3. DILTIAZEM [Concomitant]
  4. DOCUSATE [Concomitant]
  5. MAXZIDE [Concomitant]
  6. METHYLCELLULOSE [Concomitant]
  7. COMBIVENT [Concomitant]
  8. ASPIRIN [Concomitant]
  9. IBUPROFEN [Concomitant]
  10. MEGACE [Concomitant]

REACTIONS (1)
  - HYPERGLYCAEMIA [None]
